FAERS Safety Report 9601087 (Version 1)
Quarter: 2013Q4

REPORT INFORMATION
  Report Type: Spontaneous
  Country: US (occurrence: US)
  Receive Date: 20131004
  Receipt Date: 20131004
  Transmission Date: 20140711
  Serious: No
  Sender: FDA-Public Use
  Company Number: US-AMGEN-USASP2013038686

PATIENT
  Age: 45 Year
  Sex: Male
  Weight: 88.44 kg

DRUGS (6)
  1. ENBREL [Suspect]
     Indication: PRODUCT USED FOR UNKNOWN INDICATION
     Dosage: 50 MG, QWK
     Route: 058
  2. HYDROCHLOROTH [Concomitant]
     Dosage: 12.5 MG, UNK
  3. QUINAPRIL [Concomitant]
     Dosage: 10 MG, UNK
  4. TRAMADOL HCL [Concomitant]
     Dosage: 50 MG, UNK
  5. LORTAB                             /00607101/ [Concomitant]
     Dosage: 5 UNK, UNK
  6. TACLONEX [Concomitant]
     Dosage: UNK

REACTIONS (1)
  - Psoriasis [Unknown]
